FAERS Safety Report 7214886-9 (Version None)
Quarter: 2011Q1

REPORT INFORMATION
  Report Type: 
  Country: None (occurrence: None)
  Receive Date: 20110107
  Receipt Date: 20100422
  Transmission Date: 20110831
  Serious: No
  Sender: FDA-Public Use
  Company Number: A0856336A

PATIENT
  Age: 61 Year
  Sex: Male

DRUGS (2)
  1. MULTIPLE MEDICATIONS [Concomitant]
  2. LOVAZA [Suspect]
     Dosage: 2G TWICE PER DAY
     Route: 048
     Dates: start: 20100420, end: 20100421

REACTIONS (2)
  - FATIGUE [None]
  - ABDOMINAL PAIN UPPER [None]
